FAERS Safety Report 5358180-X (Version None)
Quarter: 2007Q2

REPORT INFORMATION
  Report Type: 
  Country: None (occurrence: None)
  Receive Date: 20070530
  Receipt Date: 20061120
  Transmission Date: 20071010
  Serious: Yes (Other)
  Sender: FDA-Public Use
  Company Number: US200605004857

PATIENT
  Sex: Male
  Weight: 77.1 kg

DRUGS (1)
  1. ZYPREXA [Suspect]
     Indication: BIPOLAR DISORDER
     Dosage: 10 MG, 2/D
     Dates: start: 19960101

REACTIONS (8)
  - ANXIETY [None]
  - CONVULSION [None]
  - HYPOGLYCAEMIA [None]
  - INSOMNIA [None]
  - INTESTINAL FUNCTIONAL DISORDER [None]
  - NAUSEA [None]
  - RASH [None]
  - TARDIVE DYSKINESIA [None]
